FAERS Safety Report 5173855-3 (Version None)
Quarter: 2006Q4

REPORT INFORMATION
  Report Type: 
  Country: None (occurrence: None)
  Receive Date: 20061214
  Receipt Date: 20061130
  Transmission Date: 20070319
  Serious: Yes (Other)
  Sender: FDA-Public Use
  Company Number: DE-GLAXOSMITHKLINE-D0051650A

PATIENT
  Age: 84 Year
  Sex: Male
  Weight: 78 kg

DRUGS (3)
  1. ARIXTRA [Suspect]
     Indication: THROMBOSIS
     Dosage: 7.5MG PER DAY
     Route: 058
     Dates: start: 20051110
  2. FALITHROM [Concomitant]
     Route: 048
     Dates: start: 20051110
  3. CLEXANE [Concomitant]
     Dosage: 60MG PER DAY
     Route: 058
     Dates: start: 20051109, end: 20051110

REACTIONS (1)
  - CEREBROVASCULAR ACCIDENT [None]
